FAERS Safety Report 5682395-4 (Version None)
Quarter: 2008Q1

REPORT INFORMATION
  Report Type: 
  Country: None (occurrence: None)
  Receive Date: 20080327
  Receipt Date: 20080317
  Transmission Date: 20080703
  Serious: Yes (Other)
  Sender: FDA-Public Use
  Company Number: US-ROCHE-553761

PATIENT
  Age: 87 Year
  Sex: Female

DRUGS (2)
  1. BONIVA [Suspect]
     Indication: OSTEOPOROSIS
     Dosage: RECEIVED 3 MONTHLY DOSES.
     Route: 048
     Dates: start: 20071001, end: 20071201
  2. MULTIPLE UNSPECIFIED MEDICATIONS [Concomitant]

REACTIONS (3)
  - NAUSEA [None]
  - PRURITUS [None]
  - THYROID OPERATION [None]
